FAERS Safety Report 23459109 (Version 1)
Quarter: 2024Q1

REPORT INFORMATION
  Report Type: Spontaneous
  Country: US (occurrence: US)
  Receive Date: 20240131
  Receipt Date: 20240131
  Transmission Date: 20240410
  Serious: Yes (Hospitalization, Other)
  Sender: FDA-Public Use
  Company Number: US-SANDOZ-SDZ2024US007624

PATIENT
  Age: 65 Year
  Sex: Male
  Weight: 60 kg

DRUGS (3)
  1. CYCLOPHOSPHAMIDE [Suspect]
     Active Substance: CYCLOPHOSPHAMIDE
     Indication: Lymphodepletion
     Dosage: 25 MG/KG, QD
     Route: 042
     Dates: start: 20231123, end: 20231124
  2. FLUDARABINE [Suspect]
     Active Substance: FLUDARABINE PHOSPHATE
     Indication: Lymphodepletion
     Dosage: 20 MG/M2/DAY
     Route: 042
     Dates: start: 20231122, end: 20231126
  3. ALDESLEUKIN [Suspect]
     Active Substance: ALDESLEUKIN
     Indication: Colony stimulating factor therapy
     Dosage: 1106 IU/M2
     Route: 042
     Dates: start: 20231128, end: 20231208

REACTIONS (2)
  - Haemophagocytic lymphohistiocytosis [Not Recovered/Not Resolved]
  - Pneumonia [Not Recovered/Not Resolved]
